FAERS Safety Report 6742064-6 (Version None)
Quarter: 2010Q2

REPORT INFORMATION
  Report Type: 
  Country: None (occurrence: None)
  Receive Date: 20100526
  Receipt Date: 20100521
  Transmission Date: 20101027
  Serious: Yes (Other)
  Sender: FDA-Public Use
  Company Number: GB-TEVA-235516ISR

PATIENT
  Age: 34 Year
  Sex: Female
  Weight: 66 kg

DRUGS (1)
  1. DICLOFENAC [Suspect]
     Route: 048
     Dates: start: 20100416, end: 20100504

REACTIONS (1)
  - SUPPRESSED LACTATION [None]
